FAERS Safety Report 6436829-8 (Version None)
Quarter: 2009Q4

REPORT INFORMATION
  Report Type: 
  Country: None (occurrence: None)
  Receive Date: 20091109
  Receipt Date: 20091027
  Transmission Date: 20100525
  Serious: Yes (Hospitalization)
  Sender: FDA-Public Use
  Company Number: 1-16739910

PATIENT
  Age: 54 Year
  Sex: Male
  Weight: 81.6475 kg

DRUGS (4)
  1. BACTRIM DS  TMP/800 MG SMX [Suspect]
     Indication: URINARY TRACT INFECTION
     Dosage: 160/800 MG, ONCE DAILY, ORAL
     Route: 048
     Dates: start: 20080922, end: 20080929
  2. LEVAQUIN [Suspect]
     Indication: URINARY TRACT INFECTION
     Dosage: 500 MG DAILY, ORAL
     Route: 048
     Dates: start: 20080918, end: 20080922
  3. DETROL LA [Suspect]
     Indication: URINARY INCONTINENCE
     Dosage: ORAL
     Route: 048
     Dates: start: 20080701
  4. VALIUM [Concomitant]

REACTIONS (14)
  - ASTHENIA [None]
  - DIZZINESS [None]
  - DRUG INTERACTION [None]
  - FATIGUE [None]
  - HYPOTONIA [None]
  - LETHARGY [None]
  - MUSCLE SPASMS [None]
  - MUSCLE TIGHTNESS [None]
  - MYALGIA [None]
  - RASH MACULAR [None]
  - SLEEP DISORDER [None]
  - SOCIAL AVOIDANT BEHAVIOUR [None]
  - SOMNOLENCE [None]
  - URINARY TRACT INFECTION [None]
